FAERS Safety Report 24621047 (Version 9)
Quarter: 2025Q1

REPORT INFORMATION
  Report Type: Spontaneous
  Country: US (occurrence: US)
  Receive Date: 20241114
  Receipt Date: 20250213
  Transmission Date: 20250409
  Serious: No
  Sender: PFIZER
  Company Number: US-PFIZER INC-202400294677

PATIENT
  Age: 9 Year
  Sex: Male
  Weight: 54.1 kg

DRUGS (2)
  1. GENOTROPIN [Suspect]
     Active Substance: SOMATROPIN
     Indication: Short stature
     Dosage: 1.6 MG, DAILY
  2. GENOTROPIN [Suspect]
     Active Substance: SOMATROPIN
     Dosage: 2.2 MG, DAILY
     Route: 058

REACTIONS (4)
  - Skin odour abnormal [Unknown]
  - Product administered at inappropriate site [Unknown]
  - Device defective [Unknown]
  - Expired device used [Unknown]

NARRATIVE: CASE EVENT DATE: 20240101
